FAERS Safety Report 9888123 (Version 1)
Quarter: 2014Q1

REPORT INFORMATION
  Report Type: Spontaneous
  Country: GB (occurrence: None)
  Receive Date: 20140207
  Receipt Date: 20140207
  Transmission Date: 20141002
  Serious: Yes (Disabling)
  Sender: FDA-Public Use
  Company Number: 2014AP000965

PATIENT
  Age: 64 Year
  Sex: Female

DRUGS (2)
  1. ALENDRONATE (ALENDRONATE SODIUM) [Suspect]
     Indication: OSTEOPOROSIS
     Route: 048
     Dates: start: 20081002, end: 20131101
  2. ADCAL-D3 (LEKOVIT CA) [Concomitant]

REACTIONS (3)
  - Back pain [None]
  - Chest pain [None]
  - Musculoskeletal pain [None]
